FAERS Safety Report 9312661 (Version 3)
Quarter: 2013Q2

REPORT INFORMATION
  Report Type: Spontaneous
  Country: JP (occurrence: JP)
  Receive Date: 20130528
  Receipt Date: 20130610
  Transmission Date: 20140414
  Serious: Yes (Other)
  Sender: FDA-Public Use
  Company Number: JP-OTSUKA-JP-2013-11818

PATIENT
  Age: 90 Year
  Sex: Female

DRUGS (5)
  1. SAMSCA [Suspect]
     Dosage: 7.5 MG MILLIGRAM(S), QD
     Route: 048
     Dates: start: 20130424, end: 20130425
  2. LASIX [Concomitant]
     Route: 065
  3. ALDACTONE A [Concomitant]
     Route: 048
  4. FRANDOL [Concomitant]
     Route: 061
  5. ARTIST [Concomitant]
     Route: 048

REACTIONS (1)
  - Hypernatraemia [Recovered/Resolved]
